FAERS Safety Report 16717185 (Version 1)
Quarter: 2019Q3

REPORT INFORMATION
  Report Type: Spontaneous
  Country: BE (occurrence: BE)
  Receive Date: 20190819
  Receipt Date: 20190819
  Transmission Date: 20191005
  Serious: Yes (Other)
  Sender: FDA-Public Use
  Company Number: BE-MYLANLABS-2019M1076827

PATIENT
  Age: 3 Year
  Sex: Male

DRUGS (1)
  1. BICLAR 125 MG/5ML, GRANUL?S POUR SUSPENSION BUVABLE [Suspect]
     Active Substance: CLARITHROMYCIN
     Indication: PRODUCT USED FOR UNKNOWN INDICATION
     Dosage: UNK
     Route: 048

REACTIONS (4)
  - Hallucination [Unknown]
  - Nausea [Unknown]
  - Abdominal pain [Unknown]
  - Syncope [Unknown]
